FAERS Safety Report 7390172-1 (Version None)
Quarter: 2011Q2

REPORT INFORMATION
  Report Type: 
  Country: None (occurrence: None)
  Receive Date: 20110401
  Receipt Date: 20110328
  Transmission Date: 20111010
  Serious: Yes (Death, Hospitalization, Other)
  Sender: FDA-Public Use
  Company Number: PHEH2009US01612

PATIENT
  Sex: Male
  Weight: 90.703 kg

DRUGS (52)
  1. AREDIA [Suspect]
     Dosage: UNK
     Dates: start: 19990101, end: 20040101
  2. MULTI-VITAMINS [Concomitant]
  3. FLOMAX [Concomitant]
  4. ASPIRIN [Concomitant]
  5. SUBOXONE [Concomitant]
  6. VOLMAX [Concomitant]
     Dosage: 4MG,
  7. CYTOXAN [Concomitant]
     Dosage: UNK
     Dates: start: 19990501
  8. LUPRON [Concomitant]
  9. PROCRIT                            /00909301/ [Concomitant]
     Dosage: UNK, WEEKLY
  10. ZOLOFT [Concomitant]
     Dosage: 50MG,
  11. ELAVIL [Concomitant]
     Dosage: 25MG,
  12. VANCOMYCIN [Concomitant]
     Dosage: UNK
     Dates: start: 19990501
  13. ZYRTEC [Concomitant]
  14. DETROL [Concomitant]
  15. FAMVIR                                  /NET/ [Concomitant]
  16. IPRATROPIUM BROMIDE [Concomitant]
     Dosage: UNK
  17. ZOMETA [Suspect]
     Dosage: UNK
     Dates: start: 20040101
  18. PROTONIX [Concomitant]
     Dosage: 40MG,
  19. POLYGAM S/D [Concomitant]
     Dosage: UNK
     Dates: start: 19991201
  20. LEVAQUIN [Concomitant]
  21. MEGESTROL ACETATE [Concomitant]
  22. PULMICORT [Concomitant]
  23. METFORMIN [Concomitant]
  24. TIMOLOL [Concomitant]
     Dosage: UNK
  25. ALPHAGAN [Concomitant]
     Dosage: UNK
  26. FOSAMAX [Concomitant]
  27. ALTACE [Concomitant]
     Dosage: 2.5MG,
  28. DIGOXIN [Concomitant]
  29. ADRIAMYCIN PFS [Concomitant]
     Dosage: UNK
     Dates: start: 19950501
  30. CYMBALTA [Concomitant]
  31. EPOGEN [Concomitant]
     Dosage: UNK, WEEKLY
  32. ATROVENT [Concomitant]
     Dosage: UNK
     Route: 045
  33. NEURONTIN [Concomitant]
     Dosage: 300MG,
  34. THALIDOMIDE [Concomitant]
     Dosage: UNK
     Dates: start: 20000101
  35. FUROSEMIDE [Concomitant]
  36. KLOR-CON [Concomitant]
  37. JANUVIA [Concomitant]
  38. AUGMENTIN '125' [Concomitant]
  39. ZYRTEC [Concomitant]
  40. VINCRISTINE [Concomitant]
     Dosage: UNK
     Dates: start: 19990501
  41. ENBREL [Concomitant]
     Dosage: UNK
     Dates: start: 20000701
  42. COREG [Concomitant]
  43. NEXIUM [Concomitant]
  44. LANOXIN [Concomitant]
  45. OXYCONTIN [Concomitant]
  46. ATARAX [Concomitant]
  47. NASACORT [Concomitant]
     Dosage: UNK
     Route: 045
  48. LIDODERM [Concomitant]
  49. ULTRAM [Concomitant]
  50. ADVIL LIQUI-GELS [Concomitant]
  51. GABAPENTIN [Concomitant]
  52. TRILEPTAL [Concomitant]

REACTIONS (74)
  - LOOSE TOOTH [None]
  - ATRIAL FIBRILLATION [None]
  - GASTRIC POLYPS [None]
  - HAEMANGIOMA OF LIVER [None]
  - VENTRICULAR EXTRASYSTOLES [None]
  - RASH [None]
  - GAIT DISTURBANCE [None]
  - ABDOMINAL PAIN UPPER [None]
  - FAILURE TO THRIVE [None]
  - ANAEMIA [None]
  - DEEP VEIN THROMBOSIS [None]
  - CARDIAC MURMUR [None]
  - SYNCOPE [None]
  - ARTERIOSCLEROSIS [None]
  - HERPES ZOSTER [None]
  - PROSTATIC SPECIFIC ANTIGEN INCREASED [None]
  - NAUSEA [None]
  - MULTIPLE MYELOMA [None]
  - WEIGHT DECREASED [None]
  - ASTHMA [None]
  - FALL [None]
  - PAIN [None]
  - GINGIVAL INFECTION [None]
  - DIVERTICULUM INTESTINAL [None]
  - GASTRITIS [None]
  - SINUSITIS [None]
  - SUPRAVENTRICULAR EXTRASYSTOLES [None]
  - CHEST PAIN [None]
  - TRICUSPID VALVE INCOMPETENCE [None]
  - NEUROPATHY PERIPHERAL [None]
  - URINARY RETENTION [None]
  - OSTEOPOROSIS [None]
  - MASS [None]
  - DIABETES MELLITUS [None]
  - OPEN FRACTURE [None]
  - ASTHENIA [None]
  - EROSIVE DUODENITIS [None]
  - OESOPHAGITIS [None]
  - PNEUMONIA [None]
  - CONFUSIONAL STATE [None]
  - NEURALGIA [None]
  - BUNDLE BRANCH BLOCK RIGHT [None]
  - MITRAL VALVE INCOMPETENCE [None]
  - PRURITUS [None]
  - MICTURITION URGENCY [None]
  - VOMITING [None]
  - BODY MASS INDEX INCREASED [None]
  - OSTEONECROSIS OF JAW [None]
  - HYPOGAMMAGLOBULINAEMIA [None]
  - SPINAL OSTEOARTHRITIS [None]
  - DYSPNOEA [None]
  - ORTHOSTATIC HYPOTENSION [None]
  - OSTEOMYELITIS [None]
  - SPINAL COMPRESSION FRACTURE [None]
  - CORONARY ARTERY DISEASE [None]
  - URINARY INCONTINENCE [None]
  - ERECTILE DYSFUNCTION [None]
  - TOOTH LOSS [None]
  - CEREBROVASCULAR ACCIDENT [None]
  - RENAL CYST [None]
  - HIATUS HERNIA [None]
  - PULMONARY EMBOLISM [None]
  - DECREASED APPETITE [None]
  - MYOCARDIAL INFARCTION [None]
  - TRANSIENT ISCHAEMIC ATTACK [None]
  - FATIGUE [None]
  - HYPOAESTHESIA [None]
  - PAIN IN JAW [None]
  - BONE DENSITY DECREASED [None]
  - PANCYTOPENIA [None]
  - CARDIOMEGALY [None]
  - CATARACT [None]
  - HYPERLIPIDAEMIA [None]
  - PARAESTHESIA [None]
